FAERS Safety Report 6192745-0 (Version None)
Quarter: 2009Q2

REPORT INFORMATION
  Report Type: 
  Country: None (occurrence: None)
  Receive Date: 20090514
  Receipt Date: 20090514
  Transmission Date: 20091009
  Serious: Yes (Hospitalization)
  Sender: FDA-Public Use
  Company Number: None

PATIENT
  Sex: Female
  Weight: 91.82 kg

DRUGS (2)
  1. CARBOPLATIN [Suspect]
     Dosage: 471 MG
  2. TAXOL [Suspect]
     Dosage: 269 MG

REACTIONS (5)
  - ANAEMIA [None]
  - CHILLS [None]
  - ENTERITIS [None]
  - LEUKOPENIA [None]
  - NAUSEA [None]
